FAERS Safety Report 8294525-9 (Version None)
Quarter: 2012Q2

REPORT INFORMATION
  Report Type: 
  Country: None (occurrence: None)
  Receive Date: 20120418
  Receipt Date: 20120410
  Transmission Date: 20120825
  Serious: Yes (Other)
  Sender: FDA-Public Use
  Company Number: US-ASTRAZENECA-2012SE20233

PATIENT
  Age: 54 Year
  Sex: Female
  Weight: 95.3 kg

DRUGS (24)
  1. NEXIUM [Suspect]
     Indication: GASTROOESOPHAGEAL REFLUX DISEASE
     Route: 048
     Dates: start: 20020101
  2. MYCELEX [Concomitant]
  3. INDOCIN [Concomitant]
  4. PAXIL [Concomitant]
  5. ELAVIL [Concomitant]
  6. VOLTAREN [Concomitant]
  7. CRESTOR [Suspect]
     Indication: BLOOD CHOLESTEROL
     Route: 048
     Dates: start: 20070101
  8. ZESTRIL [Suspect]
     Route: 048
  9. BACTRIM [Concomitant]
  10. LIPITOR [Concomitant]
  11. EFFEXOR [Concomitant]
  12. TRIAVIL [Concomitant]
  13. ASCORBIC ACID [Concomitant]
  14. FELODIPINE [Concomitant]
  15. ATIVAN [Concomitant]
     Dosage: 3 TIMES A DAY AS NEEDED
  16. ULTRAM [Concomitant]
     Indication: PAIN
     Dosage: AS NEEDED
  17. VICODIN [Concomitant]
  18. VITAMIN D [Concomitant]
  19. ASPIRIN [Concomitant]
  20. ENABLEX [Concomitant]
  21. ACYCLOVIR [Concomitant]
  22. TROUCH [Concomitant]
  23. LOSARTAN POTASSIUM [Concomitant]
  24. TYLENOL (CAPLET) [Concomitant]

REACTIONS (8)
  - OFF LABEL USE [None]
  - LEUKAEMIA [None]
  - GASTRIC DISORDER [None]
  - ACQUIRED OESOPHAGEAL WEB [None]
  - EROSIVE OESOPHAGITIS [None]
  - HIATUS HERNIA [None]
  - INTENTIONAL DRUG MISUSE [None]
  - DRUG HYPERSENSITIVITY [None]
